FAERS Safety Report 8155506-9 (Version None)
Quarter: 2012Q1

REPORT INFORMATION
  Report Type: 
  Country: None (occurrence: None)
  Receive Date: 20120215
  Receipt Date: 20120131
  Transmission Date: 20120608
  Serious: Yes (Other)
  Sender: FDA-Public Use
  Company Number: DE201112005811

PATIENT
  Age: 63 Year
  Sex: Female

DRUGS (8)
  1. BYETTA [Suspect]
     Indication: TYPE 2 DIABETES MELLITUS
     Dosage: 10 UG, BID
     Dates: start: 20090101, end: 20110921
  2. GLIMEPIRID (GLIMEPIRIDE) [Concomitant]
  3. METFORMIN HCL [Concomitant]
  4. BISOPROLOL FUMARATE [Concomitant]
  5. BENALAPRIL (ENALAPRIL MALEATE) [Concomitant]
  6. BYDUREON [Suspect]
     Indication: TYPE 2 DIABETES MELLITUS
     Dosage: 2 MG, WEEKLY (1/W), SUBCUTANEOUS
     Route: 058
     Dates: start: 20110921, end: 20111215
  7. SIMVASTATIN [Concomitant]
  8. SIMVASTATIN [Concomitant]

REACTIONS (4)
  - BLOOD GLUCOSE INCREASED [None]
  - AMYLASE INCREASED [None]
  - LIPASE INCREASED [None]
  - ABDOMINAL PAIN UPPER [None]
